FAERS Safety Report 5008244-5 (Version None)
Quarter: 2006Q2

REPORT INFORMATION
  Report Type: 
  Country: None (occurrence: None)
  Receive Date: 20060523
  Receipt Date: 20050329
  Transmission Date: 20061013
  Serious: Yes (Other)
  Sender: FDA-Public Use
  Company Number: PHEH2005US03757

PATIENT
  Age: 51 Year
  Sex: Female

DRUGS (34)
  1. AREDIA [Suspect]
     Indication: METASTASES TO BONE
     Dosage: UNK, UNK
     Dates: start: 20000609, end: 20020214
  2. AREDIA [Suspect]
     Dosage: 90 MG, QMO
     Route: 042
     Dates: start: 20031219, end: 20040514
  3. ZOMETA [Suspect]
     Indication: BREAST CANCER METASTATIC
     Dosage: 4 MG, QMO
     Route: 042
     Dates: start: 20020322, end: 20030912
  4. TAMOXIFEN [Concomitant]
     Dosage: 10 MG, BID
     Route: 048
     Dates: start: 20000310, end: 20020110
  5. TAMOXIFEN [Concomitant]
     Dosage: 20 MG, QD
     Route: 048
     Dates: start: 20040331, end: 20051019
  6. VALIUM [Concomitant]
     Indication: INSOMNIA
     Dosage: 2 MG, 1-2 TABS QHS
     Dates: start: 20000808
  7. VALIUM [Concomitant]
     Dosage: 5 MG, UNK
  8. VALIUM [Concomitant]
     Dosage: 10 MG, UNK
  9. VALIUM [Concomitant]
     Dosage: 7.5 MG,  2 TABS QHS PRN
     Route: 048
  10. PAXIL [Concomitant]
     Indication: DEPRESSION
     Dosage: 10 MG, QD
     Route: 048
     Dates: start: 20010712
  11. PAXIL [Concomitant]
     Dosage: 20 MG, QD
  12. PROZAC [Concomitant]
     Indication: DEPRESSION
     Dosage: 40 MG, UNK
  13. PROZAC [Concomitant]
     Dosage: 20 MG, UNK
  14. ZOLOFT [Concomitant]
     Dosage: 50 MG, QD IN AM
  15. IRON [Concomitant]
     Route: 048
  16. VICODIN [Concomitant]
     Indication: PAIN
     Dates: start: 20000302
  17. TEMAZEPAM [Concomitant]
     Indication: INSOMNIA
     Dosage: 15 MG, QHS
     Route: 048
     Dates: start: 20000310, end: 20000915
  18. ATIVAN [Concomitant]
     Indication: INSOMNIA
     Dosage: 1 MG, UNK
     Dates: start: 20000704, end: 20000704
  19. SPIRONOLACTONE [Concomitant]
     Indication: ASCITES
     Dosage: 100 MG, UNK
     Dates: start: 20000407, end: 20001027
  20. RANITIDINE [Concomitant]
     Indication: ANTACID THERAPY
  21. PRILOSEC [Concomitant]
     Indication: ULCER
     Dates: start: 20010220
  22. PROTONIX [Concomitant]
  23. FEMARA [Concomitant]
     Indication: BREAST CANCER METASTATIC
     Dosage: 2.5 MG, QD
     Dates: start: 20020523, end: 20030901
  24. NAPROXEN [Concomitant]
     Indication: PAIN
     Dosage: 500 MG, BID
     Route: 048
     Dates: start: 20030617
  25. AROMASIN [Concomitant]
     Indication: BREAST CANCER METASTATIC
     Dosage: UNK, QD
     Dates: start: 20031112, end: 20040331
  26. RITALIN [Concomitant]
     Indication: FATIGUE
     Dosage: 20 MG, QD
     Route: 048
  27. RITALIN [Concomitant]
     Dosage: 40 MG, UNK
  28. RITALIN [Concomitant]
     Dosage: 60 MG, QD
  29. RITALIN [Concomitant]
     Dosage: 80 MG, UNK
  30. ZYBAN [Concomitant]
     Indication: SMOKING CESSATION THERAPY
     Dates: start: 20040618
  31. LASIX [Concomitant]
     Indication: OEDEMA PERIPHERAL
     Dosage: 20 MG, PRN
     Route: 048
  32. AMBIEN [Concomitant]
     Indication: INSOMNIA
     Dosage: 10 MG, UNK
     Dates: start: 20021011
  33. NEXIUM [Concomitant]
  34. FASLODEX [Concomitant]

REACTIONS (40)
  - ASCITES [None]
  - ASTHENIA [None]
  - BLOOD CALCIUM ABNORMAL [None]
  - BONE DISORDER [None]
  - BONE PAIN [None]
  - BONE TRIMMING [None]
  - CONTUSION [None]
  - DEPRESSION [None]
  - DIZZINESS [None]
  - DYSPEPSIA [None]
  - FAECES DISCOLOURED [None]
  - FATIGUE [None]
  - FEELING ABNORMAL [None]
  - GASTRITIS [None]
  - HYPERSOMNIA [None]
  - HYPOKALAEMIA [None]
  - IMPAIRED GASTRIC EMPTYING [None]
  - IMPAIRED HEALING [None]
  - INFECTION [None]
  - INFLUENZA LIKE ILLNESS [None]
  - INSOMNIA [None]
  - MASTICATION DISORDER [None]
  - METASTASES TO BONE [None]
  - MUSCLE SPASMS [None]
  - MUSCLE STRAIN [None]
  - NAUSEA [None]
  - OESOPHAGITIS [None]
  - ORAL SOFT TISSUE DISORDER [None]
  - OSTEITIS [None]
  - OSTEONECROSIS [None]
  - PAIN [None]
  - PARACENTESIS ABDOMEN [None]
  - PERIODONTAL DISEASE [None]
  - PRIMARY SEQUESTRUM [None]
  - ROAD TRAFFIC ACCIDENT [None]
  - SALIVARY HYPERSECRETION [None]
  - TOOTH DISORDER [None]
  - TOOTH EXTRACTION [None]
  - TOOTHACHE [None]
  - X-RAY ABNORMAL [None]
